FAERS Safety Report 6207288-5 (Version None)
Quarter: 2009Q2

REPORT INFORMATION
  Report Type: 
  Country: None (occurrence: None)
  Receive Date: 20090527
  Receipt Date: 20090527
  Transmission Date: 20091009
  Serious: Yes (Hospitalization)
  Sender: FDA-Public Use
  Company Number: None

PATIENT
  Age: 40 Year
  Sex: Female
  Weight: 90.7194 kg

DRUGS (2)
  1. WELLBUTRIN SR [Suspect]
     Indication: ANXIETY
     Dosage: TAKE 150 MG TWO TIMES A DAY PO
     Route: 048
     Dates: start: 20080901, end: 20081118
  2. WELLBUTRIN SR [Suspect]
     Indication: DEPRESSION
     Dosage: TAKE 150 MG TWO TIMES A DAY PO
     Route: 048
     Dates: start: 20080901, end: 20081118

REACTIONS (3)
  - CONVULSION [None]
  - LOSS OF CONSCIOUSNESS [None]
  - ROAD TRAFFIC ACCIDENT [None]
